FAERS Safety Report 7908100-6 (Version None)
Quarter: 2011Q4

REPORT INFORMATION
  Report Type: 
  Country: None (occurrence: None)
  Receive Date: 20111111
  Receipt Date: 20111102
  Transmission Date: 20120403
  Serious: Yes (Other)
  Sender: FDA-Public Use
  Company Number: 2007BI020055

PATIENT
  Age: 37 Year
  Sex: Female

DRUGS (3)
  1. AVONEX [Suspect]
     Route: 030
     Dates: start: 20070801, end: 20110101
  2. AVONEX [Suspect]
     Indication: MULTIPLE SCLEROSIS
     Route: 030
     Dates: start: 20040818
  3. AVONEX [Suspect]
     Route: 030
     Dates: start: 20010910, end: 20020430

REACTIONS (2)
  - EXCESSIVE GRANULATION TISSUE [None]
  - BREAST CANCER IN SITU [None]
